FAERS Safety Report 20485580 (Version 1)
Quarter: 2022Q1

REPORT INFORMATION
  Report Type: Report from Study
  Country: US (occurrence: US)
  Receive Date: 20220217
  Receipt Date: 20220217
  Transmission Date: 20220423
  Serious: Yes (Life-Threatening)
  Sender: FDA-Public Use
  Company Number: US-EXELIXIS-CABO-21046997

PATIENT
  Age: 65 Year
  Sex: Male

DRUGS (8)
  1. CABOMETYX [Suspect]
     Active Substance: CABOZANTINIB S-MALATE
     Indication: Hepatocellular carcinoma
     Dosage: 40 MG, QD
     Route: 048
     Dates: start: 20211110, end: 20211222
  2. CABOMETYX [Suspect]
     Active Substance: CABOZANTINIB S-MALATE
     Indication: Prostate cancer metastatic
     Dosage: 40 MG, QD
     Route: 048
     Dates: start: 20220107, end: 20220120
  3. ATEZOLIZUMAB [Suspect]
     Active Substance: ATEZOLIZUMAB
     Indication: Hepatocellular carcinoma
     Dosage: UNK
     Dates: start: 20211110, end: 20211222
  4. ATEZOLIZUMAB [Suspect]
     Active Substance: ATEZOLIZUMAB
     Indication: Prostate cancer metastatic
  5. IMODIUM [Concomitant]
     Active Substance: LOPERAMIDE HYDROCHLORIDE
     Dosage: UNK
  6. VITAMINS [Concomitant]
     Active Substance: VITAMINS
     Dosage: UNK
  7. TYLENOL [Concomitant]
     Active Substance: ACETAMINOPHEN
  8. ALBUTEROL [Concomitant]
     Active Substance: ALBUTEROL

REACTIONS (15)
  - Anaemia [Recovering/Resolving]
  - Appetite disorder [Recovering/Resolving]
  - General physical health deterioration [Unknown]
  - Blood pressure decreased [Recovering/Resolving]
  - Dry skin [Recovering/Resolving]
  - Constipation [Recovered/Resolved]
  - Diarrhoea [Recovering/Resolving]
  - Fatigue [Recovering/Resolving]
  - Dehydration [Recovering/Resolving]
  - Dizziness [Unknown]
  - Asthenia [Unknown]
  - Deep vein thrombosis [Unknown]
  - Presyncope [Unknown]
  - Haematuria [Unknown]
  - Malignant neoplasm progression [Unknown]

NARRATIVE: CASE EVENT DATE: 20220117
